FAERS Safety Report 25544142 (Version 1)
Quarter: 2025Q3

REPORT INFORMATION
  Report Type: Spontaneous
  Country: US (occurrence: None)
  Receive Date: 20250710
  Receipt Date: 20250710
  Transmission Date: 20251020
  Serious: Yes (Disabling)
  Sender: FDA-CTU
  Company Number: None

PATIENT
  Age: 54 Year
  Sex: Female
  Weight: 63.9 kg

DRUGS (1)
  1. NIACINAMIDE\TIRZEPATIDE [Suspect]
     Active Substance: NIACINAMIDE\TIRZEPATIDE
     Indication: Weight decreased
     Route: 030
     Dates: start: 20241111, end: 20250630

REACTIONS (3)
  - Visual field defect [None]
  - Optic ischaemic neuropathy [None]
  - Blindness unilateral [None]

NARRATIVE: CASE EVENT DATE: 20250705
